FAERS Safety Report 17130623 (Version 4)
Quarter: 2020Q2

REPORT INFORMATION
  Report Type: Report from Study
  Country: BE (occurrence: BE)
  Receive Date: 20191209
  Receipt Date: 20200408
  Transmission Date: 20200713
  Serious: Yes (Hospitalization)
  Sender: FDA-Public Use
  Company Number: BE-BRISTOL-MYERS SQUIBB COMPANY-BMS-2019-116023

PATIENT
  Age: 72 Year
  Sex: Male
  Weight: 85 kg

DRUGS (34)
  1. NIVOLUMAB [Suspect]
     Active Substance: NIVOLUMAB
     Indication: PRODUCT USED FOR UNKNOWN INDICATION
     Dosage: UNK, Q2WK 240 (UNIT UNSPECIFIED)
     Route: 065
     Dates: start: 20190503, end: 20190503
  2. NIVOLUMAB [Suspect]
     Active Substance: NIVOLUMAB
     Indication: PRODUCT USED FOR UNKNOWN INDICATION
     Dosage: UNK, 240 (UNIT UNSPECIFIED)  Q2WK
     Route: 065
     Dates: start: 20190516, end: 20190516
  3. NIVOLUMAB [Suspect]
     Active Substance: NIVOLUMAB
     Indication: PRODUCT USED FOR UNKNOWN INDICATION
     Dosage: UNK UNK, 240 (UNIT UNSPECIFIED) Q2WK
     Route: 065
     Dates: start: 20190613, end: 20190613
  4. NIVOLUMAB [Suspect]
     Active Substance: NIVOLUMAB
     Indication: PRODUCT USED FOR UNKNOWN INDICATION
     Dosage: UNK UNK, 240 (UNIT UNSPECIFIED) Q2WK
     Route: 065
     Dates: start: 20190704, end: 20190704
  5. PARACODINE [Concomitant]
     Active Substance: DIHYDROCODEINE BITARTRATE
     Indication: PAIN MANAGEMENT
     Dosage: 10 MILLIGRAM, QD
     Route: 048
     Dates: start: 20191024, end: 20191030
  6. BURINEX [Concomitant]
     Active Substance: BUMETANIDE
     Indication: PRODUCT USED FOR UNKNOWN INDICATION
     Dosage: 1 MILLIGRAM, QD
     Route: 048
     Dates: start: 20190703, end: 20191030
  7. NIVOLUMAB [Suspect]
     Active Substance: NIVOLUMAB
     Indication: PRODUCT USED FOR UNKNOWN INDICATION
     Dosage: UNK UNK, 240 (UNIT UNSPECIFIED) Q2WK
     Route: 065
     Dates: start: 20190531, end: 20190531
  8. DUROGESIC [Concomitant]
     Active Substance: FENTANYL
     Indication: PRODUCT USED FOR UNKNOWN INDICATION
     Dosage: 12.5 MICROGRAM EVREY 3 DAYS
     Route: 062
     Dates: start: 20191010, end: 20191102
  9. PANTOMED [DEXPANTHENOL] [Concomitant]
     Indication: PAIN MANAGEMENT
     Dosage: 40 MILLIGRAM, QD
     Route: 048
     Dates: start: 20191024
  10. PANTOMED [DEXPANTHENOL] [Concomitant]
     Indication: PROPHYLAXIS
     Dosage: 20 MILLIGRAM, QD
     Route: 048
     Dates: start: 20190704, end: 20191023
  11. APOCARD [Concomitant]
     Active Substance: FLECAINIDE ACETATE
     Indication: PRODUCT USED FOR UNKNOWN INDICATION
     Dosage: 200 MILLIGRAM, QD
     Route: 048
     Dates: start: 20170126
  12. PANTOMED [DEXPANTHENOL] [Concomitant]
     Indication: GENERAL PHYSICAL HEALTH DETERIORATION
     Dosage: 40 UNK
     Route: 048
     Dates: start: 20190404, end: 20190703
  13. DEXA RHINOSPRAY N [Concomitant]
     Indication: PAIN MANAGEMENT
     Dosage: 2 DOSAGE FORM= 2 SPRAY,QD INRANASAL
     Route: 065
     Dates: start: 20190916, end: 20191024
  14. NIVOLUMAB [Suspect]
     Active Substance: NIVOLUMAB
     Indication: LUNG NEOPLASM MALIGNANT
     Dosage: UNK, Q2WK 240 (UNIT UNSPECIFIED)
     Route: 065
     Dates: start: 20190418, end: 20190418
  15. INUVAIR [Concomitant]
     Active Substance: BECLOMETHASONE DIPROPIONATE\FORMOTEROL FUMARATE
     Indication: LUNG NEOPLASM MALIGNANT
     Dosage: 100 MICROGRAM, QD ORAL INHALALTION
     Route: 065
     Dates: start: 20151207
  16. KEPPRA [Concomitant]
     Active Substance: LEVETIRACETAM
     Indication: PRODUCT USED FOR UNKNOWN INDICATION
     Dosage: 1000 MILLIGRAM, QD
     Route: 048
     Dates: start: 20170114, end: 20190703
  17. AMOXICLAV [Concomitant]
     Active Substance: AMOXICILLIN\CLAVULANATE POTASSIUM
     Indication: PRODUCT USED FOR UNKNOWN INDICATION
     Dosage: UNITS: MG QD
     Route: 048
     Dates: start: 20191107, end: 20191121
  18. NIVOLUMAB [Suspect]
     Active Substance: NIVOLUMAB
     Indication: MALIGNANT MELANOMA
     Dosage: UNK UNK, Q2WK 240 (UNIT UNSPECIFIED)
     Route: 065
     Dates: start: 20190404, end: 20190404
  19. NIVOLUMAB [Suspect]
     Active Substance: NIVOLUMAB
     Indication: PRODUCT USED FOR UNKNOWN INDICATION
     Dosage: UNK UNK, 240 (UNIT UNSPECIFIED) Q2WK
     Route: 065
     Dates: start: 20190801, end: 20190801
  20. NIVOLUMAB [Suspect]
     Active Substance: NIVOLUMAB
     Indication: PRODUCT USED FOR UNKNOWN INDICATION
     Dosage: UNK UNK, 240 (UNIT UNSPECIFIED)  Q2WK
     Route: 065
     Dates: start: 20190816, end: 20190816
  21. NIVOLUMAB [Suspect]
     Active Substance: NIVOLUMAB
     Indication: PRODUCT USED FOR UNKNOWN INDICATION
     Dosage: UNK UNK, 240 (UNIT UNSPECIFIED) Q2WK
     Route: 065
     Dates: start: 20190912, end: 20190912
  22. LAMICTAL [Concomitant]
     Active Substance: LAMOTRIGINE
     Indication: PAIN MANAGEMENT
     Dosage: 50 MILLIGRAM, QWK
     Route: 048
     Dates: start: 20191024
  23. NIVOLUMAB [Suspect]
     Active Substance: NIVOLUMAB
     Indication: PRODUCT USED FOR UNKNOWN INDICATION
     Dosage: UNK UNK,240 (UNIT UNSPECIFIED)  Q2WK
     Route: 065
     Dates: start: 20190718, end: 20190718
  24. DUROGESIC [Concomitant]
     Active Substance: FENTANYL
     Indication: PAIN MANAGEMENT
     Dosage: 12.5 MICROGRAM 2/EVERY 3 DAYS
     Route: 062
     Dates: start: 20191103
  25. DAFALGAN [Concomitant]
     Active Substance: ACETAMINOPHEN
     Indication: PAIN MANAGEMENT
     Dosage: 1 GRAM, QD
     Route: 048
     Dates: start: 20191024
  26. PANTOMED [DEXPANTHENOL] [Concomitant]
     Indication: OESOPHAGITIS
     Route: 065
  27. LIXIANA [Concomitant]
     Active Substance: EDOXABAN TOSYLATE
     Indication: PROPHYLAXIS
     Dosage: 60 MILLIGRAM, QD
     Route: 048
     Dates: start: 20170115
  28. KEPPRA [Concomitant]
     Active Substance: LEVETIRACETAM
     Indication: PRODUCT USED FOR UNKNOWN INDICATION
     Dosage: 500 MILLIGRAM, QD
     Route: 048
     Dates: start: 20190910
  29. NIVOLUMAB [Suspect]
     Active Substance: NIVOLUMAB
     Indication: PRODUCT USED FOR UNKNOWN INDICATION
     Dosage: UNK, 240 (UNIT UNSPECIFIED) Q2WK
     Route: 065
     Dates: start: 20190926, end: 20190926
  30. NIVOLUMAB [Suspect]
     Active Substance: NIVOLUMAB
     Indication: PRODUCT USED FOR UNKNOWN INDICATION
     Dosage: UNK UNK, 240 (UNIT UNSPECIFIED) Q2WK
     Route: 065
     Dates: start: 20191010, end: 20191010
  31. ATORVASTATINE [ATORVASTATIN] [Concomitant]
     Active Substance: ATORVASTATIN
     Indication: PRODUCT USED FOR UNKNOWN INDICATION
     Dosage: 40 MILLIGRAM, QD
     Route: 048
     Dates: start: 20170126
  32. NIVOLUMAB [Suspect]
     Active Substance: NIVOLUMAB
     Indication: PRODUCT USED FOR UNKNOWN INDICATION
     Dosage: UNK UNK,240 (UNIT UNSPECIFIED)  Q2WK
     Route: 065
     Dates: start: 20190829, end: 20190829
  33. LAMICTAL [Concomitant]
     Active Substance: LAMOTRIGINE
     Indication: METASTASES TO CENTRAL NERVOUS SYSTEM
     Dosage: 25 MILLIGRAM
     Route: 048
     Dates: start: 20190909, end: 20191023
  34. KEPPRA [Concomitant]
     Active Substance: LEVETIRACETAM
     Indication: PRODUCT USED FOR UNKNOWN INDICATION
     Dosage: 750 MILLIGRAM, QD
     Route: 048
     Dates: start: 20190704, end: 20190909

REACTIONS (5)
  - Weight decreased [Unknown]
  - Decreased appetite [Unknown]
  - Oesophagitis [Recovered/Resolved]
  - General physical health deterioration [Not Recovered/Not Resolved]
  - Vomiting [Unknown]

NARRATIVE: CASE EVENT DATE: 20191024
